FAERS Safety Report 18496624 (Version 1)
Quarter: 2020Q4

REPORT INFORMATION
  Report Type: Spontaneous
  Country: US (occurrence: US)
  Receive Date: 20201112
  Receipt Date: 20201112
  Transmission Date: 20210114
  Serious: Yes (Disabling, Other)
  Sender: FDA-Public Use
  Company Number: US-TEVA-2020-US-1847599

PATIENT

DRUGS (9)
  1. ACETAMINOPHEN W/OXYCODONE [Suspect]
     Active Substance: ACETAMINOPHEN\OXYCODONE HYDROCHLORIDE
     Route: 065
  2. OXYCODONE ER TABLETS [Suspect]
     Active Substance: OXYCODONE
     Route: 065
  3. OXYCONTIN [Suspect]
     Active Substance: OXYCODONE HYDROCHLORIDE
     Route: 065
  4. TRAMADOL. [Suspect]
     Active Substance: TRAMADOL
     Route: 065
  5. DILAUDID [Suspect]
     Active Substance: HYDROMORPHONE HYDROCHLORIDE
     Route: 065
  6. MS CONTIN [Suspect]
     Active Substance: MORPHINE SULFATE
     Route: 065
  7. OXYCODONE IR [Suspect]
     Active Substance: OXYCODONE
     Route: 065
  8. MORPHINE ER [Suspect]
     Active Substance: MORPHINE
     Route: 065
  9. HYDROCODONE BITARTRATE AND ACETAMINOPHEN [Suspect]
     Active Substance: ACETAMINOPHEN\HYDROCODONE BITARTRATE
     Route: 065

REACTIONS (6)
  - Learning disability [Unknown]
  - Overdose [Unknown]
  - Brain injury [Unknown]
  - Developmental delay [Unknown]
  - Cardiac disorder [Unknown]
  - Dependence [Unknown]
